FAERS Safety Report 8685139 (Version 4)
Quarter: 2013Q1

REPORT INFORMATION
  Report Type: Spontaneous
  Country: US (occurrence: US)
  Receive Date: 20120726
  Receipt Date: 20130326
  Transmission Date: 20140127
  Serious: No
  Sender: FDA-Public Use
  Company Number: US-ASTRAZENECA-2011SE47799

PATIENT
  Age: 69 Year
  Sex: Female
  Weight: 79.4 kg

DRUGS (18)
  1. SEROQUEL [Suspect]
     Indication: DEPRESSION
     Route: 048
     Dates: start: 2009
  2. SEROQUEL [Suspect]
     Indication: ANXIETY
     Route: 048
     Dates: start: 2009
  3. SEROQUEL [Suspect]
     Indication: DEPRESSION
     Route: 048
  4. SEROQUEL [Suspect]
     Indication: ANXIETY
     Route: 048
  5. SEROQUEL [Suspect]
     Indication: DEPRESSION
     Route: 048
  6. SEROQUEL [Suspect]
     Indication: ANXIETY
     Route: 048
  7. SEROQUEL [Suspect]
     Indication: DEPRESSION
     Route: 048
     Dates: end: 201212
  8. SEROQUEL [Suspect]
     Indication: ANXIETY
     Route: 048
     Dates: end: 201212
  9. SEROQUEL [Suspect]
     Indication: DEPRESSION
     Route: 048
     Dates: start: 201212
  10. SEROQUEL [Suspect]
     Indication: ANXIETY
     Route: 048
     Dates: start: 201212
  11. SEROQUEL [Suspect]
     Indication: DEPRESSION
     Route: 048
  12. SEROQUEL [Suspect]
     Indication: ANXIETY
     Route: 048
  13. HYDROCODONE [Concomitant]
  14. CLONAZEPAM [Concomitant]
  15. TRAMADOL [Concomitant]
  16. TYLENOL [Concomitant]
  17. MIRALAX [Concomitant]
  18. OMEPRAZOLE [Concomitant]

REACTIONS (7)
  - Depression [Unknown]
  - Nasopharyngitis [Recovering/Resolving]
  - Malaise [Unknown]
  - Cough [Unknown]
  - Weight increased [Unknown]
  - Intentional drug misuse [Unknown]
  - Drug dose omission [Unknown]
